FAERS Safety Report 7968062-2 (Version None)
Quarter: 2011Q4

REPORT INFORMATION
  Report Type: 
  Country: None (occurrence: None)
  Receive Date: 20111207
  Receipt Date: 20111121
  Transmission Date: 20120403
  Serious: Yes (Life-Threatening)
  Sender: FDA-Public Use
  Company Number: 2011AP001699

PATIENT
  Age: 43 Year
  Sex: Female

DRUGS (8)
  1. ETODOLAC [Concomitant]
  2. CONTRACEPTIVES (CONTRACEPTIVES) [Concomitant]
  3. LANSOPRAZOLE [Concomitant]
  4. SULPHASLAZINE (SULPHASLAZINE) [Concomitant]
  5. CETIRIZINE [Concomitant]
  6. METHOTREXATE [Concomitant]
  7. HARPAGOPHYTUM PRTOCUMBENS (HARPAGOPHYTUM PROCUMBENS) [Concomitant]
  8. LEFLUNOMIDE [Suspect]
     Indication: PSORIATIC ARTHROPATHY
     Dosage: PO
     Route: 048
     Dates: start: 20031229, end: 20110707

REACTIONS (3)
  - OESTROGEN RECEPTOR ASSAY POSITIVE [None]
  - BREAST CANCER METASTATIC [None]
  - PROGESTERONE RECEPTOR ASSAY POSITIVE [None]
